FAERS Safety Report 6718483-0 (Version None)
Quarter: 2010Q2

REPORT INFORMATION
  Report Type: 
  Country: None (occurrence: None)
  Receive Date: 20100510
  Receipt Date: 20100503
  Transmission Date: 20101027
  Serious: Yes (Other)
  Sender: FDA-Public Use
  Company Number: US-PFIZER INC-2010032957

PATIENT
  Sex: Female
  Weight: 52 kg

DRUGS (2)
  1. LYRICA [Suspect]
     Indication: CONVULSION
     Dosage: 25 MG, 2X/DAY
     Route: 048
     Dates: start: 20100228
  2. RUFINAMIDE [Concomitant]
     Indication: CONVULSION
     Dosage: 800 MG, 1X/DAY
     Route: 048

REACTIONS (6)
  - ABNORMAL BEHAVIOUR [None]
  - ACNE [None]
  - CONVULSION [None]
  - DRUG HYPERSENSITIVITY [None]
  - MUSCLE SPASMS [None]
  - WEIGHT INCREASED [None]
